FAERS Safety Report 12801486 (Version 1)
Quarter: 2016Q4

REPORT INFORMATION
  Report Type: Report from Study
  Country: US (occurrence: US)
  Receive Date: 20161003
  Receipt Date: 20161003
  Transmission Date: 20170207
  Serious: Yes (Death, Hospitalization, Other)
  Sender: FDA-Public Use
  Company Number: US-ROCHE-1667083

PATIENT
  Age: 61 Year
  Sex: Female
  Weight: 133.8 kg

DRUGS (13)
  1. BEVACIZUMAB [Suspect]
     Active Substance: BEVACIZUMAB
     Dosage: COURSE:4
     Route: 042
     Dates: start: 20101130
  2. IXABEPILONE [Suspect]
     Active Substance: IXABEPILONE
     Dosage: COURSE:2
     Route: 042
     Dates: start: 20110107
  3. BEVACIZUMAB [Suspect]
     Active Substance: BEVACIZUMAB
     Dosage: COURSE:3
     Route: 042
     Dates: start: 20101027
  4. IXABEPILONE [Suspect]
     Active Substance: IXABEPILONE
     Dosage: COURSE:5
     Route: 042
     Dates: start: 20110107
  5. CARBOPLATIN. [Suspect]
     Active Substance: CARBOPLATIN
     Route: 042
     Dates: start: 20110107
  6. BEVACIZUMAB [Suspect]
     Active Substance: BEVACIZUMAB
     Indication: ENDOMETRIAL CANCER
     Dosage: COURSE:1
     Route: 042
     Dates: start: 20100916
  7. CARBOPLATIN. [Suspect]
     Active Substance: CARBOPLATIN
     Route: 042
  8. BEVACIZUMAB [Suspect]
     Active Substance: BEVACIZUMAB
     Dosage: COURSE:2
     Route: 042
     Dates: start: 20110107
  9. BEVACIZUMAB [Suspect]
     Active Substance: BEVACIZUMAB
     Dosage: COURSE:5
     Route: 042
     Dates: start: 20110107
  10. CARBOPLATIN. [Suspect]
     Active Substance: CARBOPLATIN
     Indication: ENDOMETRIAL CANCER
     Dosage: AUC = 6
     Route: 042
     Dates: start: 20100916
  11. IXABEPILONE [Suspect]
     Active Substance: IXABEPILONE
     Indication: ENDOMETRIAL CANCER
     Dosage: COURSE:1
     Route: 042
     Dates: start: 20100916
  12. IXABEPILONE [Suspect]
     Active Substance: IXABEPILONE
     Dosage: COURSE:3
     Route: 042
     Dates: start: 20101027
  13. IXABEPILONE [Suspect]
     Active Substance: IXABEPILONE
     Dosage: COURSE:4
     Route: 042
     Dates: start: 20101130

REACTIONS (10)
  - Blood bilirubin increased [Unknown]
  - Fatigue [Fatal]
  - Hypoxia [Fatal]
  - Hypoxia [Recovered/Resolved]
  - White blood cell count decreased [Unknown]
  - Hyponatraemia [Fatal]
  - Anaemia [Fatal]
  - Cardiac failure [Unknown]
  - Death [Fatal]
  - Platelet count decreased [Fatal]

NARRATIVE: CASE EVENT DATE: 20101111
